FAERS Safety Report 7947200-1 (Version None)
Quarter: 2011Q4

REPORT INFORMATION
  Report Type: 
  Country: None (occurrence: None)
  Receive Date: 20111129
  Receipt Date: 20111125
  Transmission Date: 20120403
  Serious: Yes (Death, Life-Threatening)
  Sender: FDA-Public Use
  Company Number: DK-ASTRAZENECA-2011SE71730

PATIENT
  Age: 48 Year
  Sex: Female
  Weight: 90 kg

DRUGS (2)
  1. SEROQUEL [Suspect]
     Indication: ANXIETY
     Route: 048
     Dates: start: 20101004
  2. CLONAZEPAM [Concomitant]
     Indication: ANXIETY
     Dates: start: 20110201

REACTIONS (1)
  - SUDDEN DEATH [None]
